FAERS Safety Report 6018545-X (Version None)
Quarter: 2008Q4

REPORT INFORMATION
  Report Type: 
  Country: None (occurrence: None)
  Receive Date: 20081223
  Receipt Date: 20081204
  Transmission Date: 20090506
  Serious: No
  Sender: FDA-Public Use
  Company Number: US-B.I. PHARMACEUTICALS,INC./RIDGEFIELD-2008-BP-18275BP

PATIENT

DRUGS (3)
  1. MIRAPEX [Suspect]
     Indication: RESTLESS LEGS SYNDROME
     Dosage: .5MG
     Route: 048
  2. MIRAPEX [Suspect]
     Indication: PERIODIC LIMB MOVEMENT DISORDER
  3. CLONAZEPAM [Concomitant]
     Dosage: 2.5MG

REACTIONS (2)
  - DYSKINESIA [None]
  - RESTLESSNESS [None]
